FAERS Safety Report 12950550 (Version 3)
Quarter: 2016Q4

REPORT INFORMATION
  Report Type: Spontaneous
  Country: US (occurrence: US)
  Receive Date: 20161117
  Receipt Date: 20161129
  Transmission Date: 20170207
  Serious: Yes (Other)
  Sender: FDA-Public Use
  Company Number: US-GLAXOSMITHKLINE-US2016167807

PATIENT
  Age: 67 Year
  Sex: Male
  Weight: 65 kg

DRUGS (12)
  1. RANITIDINE. [Suspect]
     Active Substance: RANITIDINE
     Indication: GASTROOESOPHAGEAL REFLUX DISEASE
     Dosage: 300 MG, QD
  2. LOSARTAN. [Concomitant]
     Active Substance: LOSARTAN
  3. RANITIDINE. [Interacting]
     Active Substance: RANITIDINE
     Dosage: 300 MG, UNK
  4. LOSARTAN. [Concomitant]
     Active Substance: LOSARTAN
     Indication: HYPERTENSION
     Dosage: 100 MG, UNK
  5. LOSARTAN. [Concomitant]
     Active Substance: LOSARTAN
  6. FINASTERIDE. [Concomitant]
     Active Substance: FINASTERIDE
  7. TAMSULOSIN [Interacting]
     Active Substance: TAMSULOSIN
     Dosage: 0.4 MG, UNK
  8. TAMSULOSIN [Interacting]
     Active Substance: TAMSULOSIN
  9. RANITIDINE. [Interacting]
     Active Substance: RANITIDINE
  10. FINASTERIDE. [Concomitant]
     Active Substance: FINASTERIDE
     Indication: BENIGN PROSTATIC HYPERPLASIA
  11. TAMSULOSIN [Interacting]
     Active Substance: TAMSULOSIN
     Indication: BENIGN PROSTATIC HYPERPLASIA
     Dosage: 0.4 MG, QD
  12. FINASTERIDE. [Concomitant]
     Active Substance: FINASTERIDE

REACTIONS (2)
  - Drug interaction [Recovered/Resolved]
  - Condition aggravated [Recovered/Resolved]
